FAERS Safety Report 7234568-7 (Version None)
Quarter: 2011Q1

REPORT INFORMATION
  Report Type: 
  Country: None (occurrence: None)
  Receive Date: 20110120
  Receipt Date: 20110113
  Transmission Date: 20110831
  Serious: Yes (Hospitalization, Other)
  Sender: FDA-Public Use
  Company Number: US-ASTRAZENECA-2005UW13294

PATIENT
  Age: 12560 Day
  Sex: Female
  Weight: 93 kg

DRUGS (26)
  1. SEROQUEL [Suspect]
     Indication: BIPOLAR DISORDER
     Dosage: 200 TO 600 MG
     Route: 048
     Dates: start: 20020131
  2. KEFLEX [Concomitant]
     Route: 048
  3. BENZODIAZEPINE [Concomitant]
     Dates: start: 20020101
  4. SEROQUEL [Suspect]
     Route: 048
     Dates: start: 20020205, end: 20040514
  5. RISPERDAL [Concomitant]
     Dates: start: 20040601, end: 20040701
  6. TEMAZEPAM [Concomitant]
  7. NEURONTIN [Concomitant]
     Indication: ANXIETY
     Route: 048
     Dates: start: 20020524
  8. VICODIN [Concomitant]
     Dosage: 500 - 5 MG, 750 - 7.5 MG AS NEEDED
     Route: 048
  9. DARVOCET-N 100 [Concomitant]
     Dosage: 100 - 650 MG AS NEEDED
     Route: 048
  10. REMERON [Concomitant]
  11. SEROQUEL [Suspect]
     Indication: DEPRESSION
     Dosage: 200 TO 600 MG
     Route: 048
     Dates: start: 20020131
  12. PAXIL [Concomitant]
     Dates: start: 20000101
  13. SEROQUEL [Suspect]
     Dosage: 200 - 800 MG
     Route: 048
     Dates: start: 20020205
  14. SEROQUEL [Suspect]
     Dosage: 200 - 800 MG
     Route: 048
     Dates: start: 20020205
  15. XANAX [Concomitant]
     Dosage: 1 - 2 MG FLUCTUATING
     Route: 048
  16. ZONISAMIDE [Concomitant]
     Route: 048
  17. PROPRANOLOL [Concomitant]
  18. SEROQUEL [Suspect]
     Route: 048
     Dates: start: 20020205, end: 20040514
  19. NEURONTIN [Concomitant]
     Dosage: 200 MG TO 900 MG
     Dates: start: 20020726
  20. ACTOS [Concomitant]
     Route: 048
  21. TRAZODONE [Concomitant]
     Dosage: 50 MG - 300 MG FLUCTUATING
     Route: 048
  22. METFORMIN [Concomitant]
     Route: 048
  23. AMITRIPTYLINE [Concomitant]
  24. CELEXA [Concomitant]
  25. TRAZODONE [Concomitant]
     Dosage: 50 MG TO 100 MG
  26. ATENOLOL [Concomitant]
     Route: 048

REACTIONS (11)
  - GLAUCOMA [None]
  - BLOOD GLUCOSE ABNORMAL [None]
  - URETHRAL DISORDER [None]
  - STRESS URINARY INCONTINENCE [None]
  - DYSPAREUNIA [None]
  - UTERINE DISORDER [None]
  - PELVIC PAIN [None]
  - WEIGHT INCREASED [None]
  - ADENOMYOSIS [None]
  - RECTOCELE [None]
  - TYPE 2 DIABETES MELLITUS [None]
